FAERS Safety Report 14224714 (Version 2)
Quarter: 2017Q4

REPORT INFORMATION
  Report Type: Spontaneous
  Country: FR (occurrence: FR)
  Receive Date: 20171127
  Receipt Date: 20171205
  Transmission Date: 20180321
  Serious: Yes (Death, Hospitalization, Other)
  Sender: FDA-Public Use
  Company Number: FR-009507513-1711FRA008350

PATIENT
  Age: 81 Year
  Sex: Female
  Weight: 62 kg

DRUGS (7)
  1. DELURSAN [Concomitant]
     Active Substance: URSODIOL
     Indication: HEPATOCELLULAR INJURY
     Dosage: 500 MG, BID
     Dates: start: 20040517
  2. VIRAFERONPEG [Suspect]
     Active Substance: PEGINTERFERON ALFA-2B
     Indication: HEPATITIS C
     Dosage: 120 MICROGRAM, QW
     Dates: start: 20010822, end: 20020624
  3. PARIET [Concomitant]
     Active Substance: RABEPRAZOLE SODIUM
     Dosage: 10 MG, QD (1 TABLET IN THE MORNING)
  4. HEMIGOXINE NATIVELLE [Concomitant]
     Active Substance: DIGOXIN
     Indication: CARDIOMYOPATHY
     Dosage: UNK
  5. LASILIX [Concomitant]
     Active Substance: FUROSEMIDE
     Indication: CARDIOMYOPATHY
     Dosage: 40 MG, QD, ONE TAB IN THE MORNING
  6. ATACAND [Concomitant]
     Active Substance: CANDESARTAN CILEXETIL
     Indication: CARDIOMYOPATHY
     Dosage: 16 MG, QD (1 TABLET IN THE MORNING)
     Dates: start: 20121201
  7. CARDENSIEL [Concomitant]
     Active Substance: BISOPROLOL FUMARATE
     Indication: CARDIOMYOPATHY
     Dosage: 1.25 MG, QD
     Dates: start: 20030401

REACTIONS (3)
  - Anaemia [Unknown]
  - Hepatic cirrhosis [Fatal]
  - General physical condition abnormal [Fatal]

NARRATIVE: CASE EVENT DATE: 20160614
